FAERS Safety Report 16740058 (Version 1)
Quarter: 2019Q4

REPORT INFORMATION
  Report Type: Spontaneous
  Country: US (occurrence: US)
  Receive Date: 20190823
  Receipt Date: 20190823
  Transmission Date: 20200122
  Serious: Yes (Disabling)
  Sender: FDA-Public Use
  Company Number: None

PATIENT
  Age: 22 Month
  Weight: 12.15 kg

DRUGS (1)
  1. AMOX-CLAV 600-42.9 MG/5-ML SIS [Suspect]
     Active Substance: AMOXICILLIN\CLAVULANATE POTASSIUM
     Route: 048
     Dates: start: 20190809, end: 20190819

REACTIONS (1)
  - Rash [None]

NARRATIVE: CASE EVENT DATE: 20190816
